FAERS Safety Report 6655727-8 (Version None)
Quarter: 2010Q1

REPORT INFORMATION
  Report Type: 
  Country: None (occurrence: None)
  Receive Date: 20100329
  Receipt Date: 20100325
  Transmission Date: 20100710
  Serious: Yes (Life-Threatening, Hospitalization)
  Sender: FDA-Public Use
  Company Number: US-ROCHE-662388

PATIENT
  Sex: Female
  Weight: 78 kg

DRUGS (23)
  1. TOCILIZUMAB [Suspect]
     Indication: RHEUMATOID ARTHRITIS
     Dosage: REPORTED FORM:INFUSION. LAST DOSE PRIOR TO EVENT GIVEN ON 24 AUG 09
     Route: 042
     Dates: start: 20080731, end: 20090924
  2. TOCILIZUMAB [Suspect]
     Route: 042
     Dates: start: 20091116
  3. BLINDED TOCILIZUMAB [Suspect]
     Indication: RHEUMATOID ARTHRITIS
     Route: 042
     Dates: start: 20060801
  4. METHOTREXATE [Concomitant]
     Indication: RHEUMATOID ARTHRITIS
     Route: 048
     Dates: start: 20060220
  5. FOLIC ACID [Concomitant]
     Dates: start: 20051115
  6. VITAMIN D [Concomitant]
     Dates: start: 20060101
  7. PREMARIN [Concomitant]
     Dates: start: 20060101
  8. DARIFENACIN [Concomitant]
  9. LOPRESSOR [Concomitant]
  10. CALCIUM [Concomitant]
     Dates: start: 20060101
  11. PRILOSEC [Concomitant]
     Dates: start: 20070117
  12. MOBIC [Concomitant]
     Route: 048
     Dates: start: 20080325
  13. PREDNISONE [Concomitant]
     Dates: start: 20030812
  14. ASPIRIN [Concomitant]
     Dates: start: 20040101
  15. BIOTIN [Concomitant]
     Dates: start: 20060101
  16. VOLTAREN [Concomitant]
     Dates: start: 20080905, end: 20081007
  17. DYAZIDE [Concomitant]
     Dates: start: 20080726
  18. TYLENOL [Concomitant]
     Dosage: REPORTED DRUG NAME: TYLENOL ES
     Dates: start: 20050101
  19. PROVENTIL GENTLEHALER [Concomitant]
     Dosage: REPORTED DRUG NAME: PROVENTAL INHALER
     Dates: start: 20040101
  20. CALCIUM NOS [Concomitant]
     Dosage: DRUG NAME: CALCIUM + D
  21. LEVAQUIN [Concomitant]
  22. FLAGYL [Concomitant]
     Dosage: TOTAL DAILY DOSE: 1500MG
  23. CORTICOSTEROIDS [Concomitant]
     Route: 048

REACTIONS (3)
  - BILIARY TRACT DISORDER [None]
  - CHOLECYSTITIS INFECTIVE [None]
  - DEEP VEIN THROMBOSIS [None]
